FAERS Safety Report 8624193-5 (Version None)
Quarter: 2012Q3

REPORT INFORMATION
  Report Type: 
  Country: None (occurrence: None)
  Receive Date: 20120824
  Receipt Date: 20120824
  Transmission Date: 20120928
  Serious: Yes (Hospitalization)
  Sender: FDA-Public Use
  Company Number: None

PATIENT
  Age: 72 Year
  Sex: Male
  Weight: 51 kg

DRUGS (1)
  1. DIPHENHYDRAMINE HYDROCHLORIDE [Suspect]
     Indication: URINARY RETENTION
     Dosage: MG  PO
     Route: 048
     Dates: start: 20120724, end: 20120822

REACTIONS (1)
  - URINARY RETENTION [None]
